FAERS Safety Report 9636324 (Version 1)
Quarter: 2013Q4

REPORT INFORMATION
  Report Type: Spontaneous
  Country: GB (occurrence: GB)
  Receive Date: 20131021
  Receipt Date: 20131021
  Transmission Date: 20140711
  Serious: Yes (Hospitalization, Other)
  Sender: FDA-Public Use
  Company Number: GB-TEVA-437926ISR

PATIENT
  Age: 75 Year
  Sex: Female

DRUGS (9)
  1. TRIMETHOPRIM [Suspect]
     Indication: URINARY TRACT INFECTION
     Route: 048
     Dates: start: 20130919, end: 20130919
  2. CLOPIDOGREL [Concomitant]
     Indication: THROMBOSIS PROPHYLAXIS
     Route: 048
  3. DOSULEPIN [Concomitant]
     Route: 048
  4. TEMAZEPAM [Concomitant]
     Route: 048
  5. CO-CODAMOL [Concomitant]
     Indication: HEADACHE
     Dosage: 8/500
     Route: 048
  6. LANSOPRAZOLE [Concomitant]
     Indication: REFLUX GASTRITIS
     Route: 048
  7. MULTIVITAMIN [Concomitant]
     Indication: PROPHYLAXIS
     Dosage: INDICATION: BONE HEALTH
  8. PRAVASTATIN [Concomitant]
     Dosage: AT NIGHT
  9. UNSPECIFIED MEDICATION [Concomitant]
     Indication: PROPHYLAXIS
     Dosage: INDICATION: BONE HEALTH

REACTIONS (3)
  - Chills [Recovering/Resolving]
  - Dizziness [Recovering/Resolving]
  - Tremor [Recovering/Resolving]
